FAERS Safety Report 10156163 (Version 2)
Quarter: 2014Q2

REPORT INFORMATION
  Report Type: Spontaneous
  Country: ZA (occurrence: ZA)
  Receive Date: 20140506
  Receipt Date: 20140506
  Transmission Date: 20141212
  Serious: Yes (Life-Threatening)
  Sender: FDA-Public Use
  Company Number: ZA-009507513-1404ZAF002155

PATIENT
  Age: 23 Year
  Sex: Male

DRUGS (2)
  1. SINGULAIR 10MG [Suspect]
     Dosage: 1 OD DAILY
     Route: 048
     Dates: start: 20140328, end: 20140330
  2. SERETIDE [Concomitant]
     Indication: ASTHMA

REACTIONS (1)
  - Asthma [Recovered/Resolved]
